FAERS Safety Report 14984250 (Version 1)
Quarter: 2018Q2

REPORT INFORMATION
  Report Type: Spontaneous
  Country: LB (occurrence: LB)
  Receive Date: 20180607
  Receipt Date: 20180607
  Transmission Date: 20180711
  Serious: No
  Sender: FDA-Public Use
  Company Number: LB-JAZZ-2018-LB-001239

PATIENT
  Age: 62 Year
  Sex: Male

DRUGS (3)
  1. DEFITELIO [Suspect]
     Active Substance: DEFIBROTIDE SODIUM
     Indication: PROPHYLAXIS
     Dosage: 6.25 MG/KG, QD
     Route: 042
     Dates: start: 20180114
  2. BUSULFAN. [Concomitant]
     Active Substance: BUSULFAN
  3. THIOTEPA. [Concomitant]
     Active Substance: THIOTEPA

REACTIONS (1)
  - Off label use [Unknown]

NARRATIVE: CASE EVENT DATE: 20180114
